FAERS Safety Report 5798087-7 (Version None)
Quarter: 2008Q3

REPORT INFORMATION
  Report Type: 
  Country: None (occurrence: None)
  Receive Date: 20080702
  Receipt Date: 20071227
  Transmission Date: 20090109
  Serious: No
  Sender: FDA-Public Use
  Company Number: US-ASTRAZENECA-2007UW29009

PATIENT
  Sex: Male

DRUGS (3)
  1. ZOLADEX [Suspect]
     Indication: PROSTATE CANCER
     Route: 058
  2. ANTIDEPRESSANT [Concomitant]
  3. CHOLESTEROL MEDICATION [Concomitant]

REACTIONS (4)
  - HOT FLUSH [None]
  - INCREASED APPETITE [None]
  - IRRITABILITY [None]
  - WEIGHT INCREASED [None]
